FAERS Safety Report 25075999 (Version 1)
Quarter: 2025Q1

REPORT INFORMATION
  Report Type: Spontaneous
  Country: IN (occurrence: IN)
  Receive Date: 20250313
  Receipt Date: 20250313
  Transmission Date: 20250408
  Serious: Yes (Other)
  Sender: AZURITY PHARMACEUTICALS
  Company Number: IN-AZURITY PHARMACEUTICALS, INC.-AZR202502-000738

PATIENT
  Age: 31 Year
  Sex: Male

DRUGS (1)
  1. METHYLPREDNISOLONE ACETATE [Suspect]
     Active Substance: METHYLPREDNISOLONE ACETATE
     Indication: Granulomatosis with polyangiitis
     Dosage: 1 GM/DAY (3-DAY PULSE DOSE)
     Route: 042

REACTIONS (6)
  - Hypogammaglobulinaemia [Unknown]
  - Haemoglobin decreased [Recovering/Resolving]
  - Hypotension [Unknown]
  - Cytomegalovirus duodenitis [Recovering/Resolving]
  - Gastrointestinal ulcer [Unknown]
  - Gastrointestinal ulcer haemorrhage [Recovered/Resolved]
